FAERS Safety Report 8911348 (Version 2)
Quarter: 2012Q4

REPORT INFORMATION
  Report Type: 
  Country: US (occurrence: US)
  Receive Date: 20121116
  Receipt Date: 20121130
  Transmission Date: 20130627
  Serious: No
  Sender: FDA-Public Use
  Company Number: US-009507513-1210USA014113

PATIENT
  Age: 14 Year
  Sex: Male
  Weight: 63.49 kg

DRUGS (2)
  1. CLARITIN-D 24 HOUR [Suspect]
     Indication: HYPERSENSITIVITY
     Dosage: 10 mg, qd
     Route: 048
     Dates: start: 20120905, end: 20120909
  2. CLARITIN-D 24 HOUR [Suspect]
     Indication: MEDICAL OBSERVATION
     Dosage: 20 mg, Once
     Route: 048
     Dates: start: 20120910

REACTIONS (1)
  - Overdose [Recovered/Resolved]
